FAERS Safety Report 5488612-8 (Version None)
Quarter: 2007Q4

REPORT INFORMATION
  Report Type: 
  Country: None (occurrence: None)
  Receive Date: 20071001
  Receipt Date: 20061009
  Transmission Date: 20080405
  Serious: Yes (Other)
  Sender: FDA-Public Use
  Company Number: 200615905BWH

PATIENT
  Age: 47 Year
  Sex: Female

DRUGS (2)
  1. CIPRO [Suspect]
     Indication: SINUSITIS
     Dates: end: 20020101
  2. CIPRO [Suspect]
     Indication: TONSILLITIS
     Dates: end: 20020101

REACTIONS (3)
  - GAIT DISTURBANCE [None]
  - TENDON RUPTURE [None]
  - TENDONITIS [None]
